FAERS Safety Report 17267458 (Version 1)
Quarter: 2020Q1

REPORT INFORMATION
  Report Type: Spontaneous
  Country: US (occurrence: US)
  Receive Date: 20200114
  Receipt Date: 20200114
  Transmission Date: 20200409
  Serious: No
  Sender: FDA-Public Use
  Company Number: US-SA-2020SA009504

PATIENT
  Age: 46 Year
  Sex: Female

DRUGS (1)
  1. PRALUENT [Suspect]
     Active Substance: ALIROCUMAB
     Dosage: UNK UNK, OTHER
     Route: 058
     Dates: start: 201907

REACTIONS (1)
  - Glycosylated haemoglobin increased [Unknown]
